FAERS Safety Report 8202420-6 (Version None)
Quarter: 2012Q1

REPORT INFORMATION
  Report Type: 
  Country: None (occurrence: None)
  Receive Date: 20120312
  Receipt Date: 20111109
  Transmission Date: 20120608
  Serious: No
  Sender: FDA-Public Use
  Company Number: US-ABBOTT-11P-163-0873092-00

PATIENT
  Sex: Female
  Weight: 59.02 kg

DRUGS (6)
  1. DIVALPROEX SODIUM [Suspect]
     Dates: start: 20111102, end: 20111107
  2. DIVALPROEX SODIUM [Suspect]
     Dates: start: 20111107, end: 20111109
  3. DIVALPROEX SODIUM [Suspect]
     Indication: CONVULSION
     Dates: start: 20111030, end: 20111107
  4. KEPPRA [Concomitant]
     Indication: CONVULSION
  5. VIMPAT [Concomitant]
     Indication: CONVULSION
  6. ZYRTEC [Concomitant]
     Indication: HYPERSENSITIVITY

REACTIONS (3)
  - SOMNOLENCE [None]
  - BACK PAIN [None]
  - DRUG DISPENSING ERROR [None]
